FAERS Safety Report 4798988-2 (Version None)
Quarter: 2005Q4

REPORT INFORMATION
  Report Type: 
  Country: None (occurrence: None)
  Receive Date: 20051014
  Receipt Date: 20051010
  Transmission Date: 20060501
  Serious: Yes (Hospitalization)
  Sender: FDA-Public Use
  Company Number: DE-ABBOTT-05P-062-0313487-00

PATIENT
  Age: 51 Year
  Sex: Male

DRUGS (7)
  1. HUMIRA [Suspect]
     Indication: RHEUMATOID ARTHRITIS
     Route: 058
     Dates: start: 20031201, end: 20050714
  2. HUMIRA [Suspect]
     Route: 058
     Dates: start: 20051005
  3. PREDNISOLONE [Concomitant]
     Indication: RHEUMATOID ARTHRITIS
     Route: 048
  4. METHOTREXATE SODIUM [Concomitant]
     Indication: RHEUMATOID ARTHRITIS
     Route: 058
  5. ARTHROTEC [Concomitant]
     Indication: RHEUMATOID ARTHRITIS
     Route: 048
  6. CALCIUM WITH VITAMIN D [Concomitant]
     Indication: OSTEOPOROSIS
     Route: 048
  7. RISEDRONATE SODIUM [Concomitant]
     Indication: OSTEOPOROSIS

REACTIONS (2)
  - CARDIAC FAILURE [None]
  - CARDITIS [None]
